FAERS Safety Report 8871726 (Version 6)
Quarter: 2013Q2

REPORT INFORMATION
  Report Type: Spontaneous
  Country: US (occurrence: US)
  Receive Date: 20121030
  Receipt Date: 20130506
  Transmission Date: 20140414
  Serious: No
  Sender: FDA-Public Use
  Company Number: US-009507513-1210USA003495

PATIENT
  Age: 40 Year
  Sex: Female
  Weight: 59.86 kg

DRUGS (1)
  1. IMPLANON [Suspect]
     Indication: CONTRACEPTION
     Dosage: 1 ROD
     Route: 059
     Dates: start: 20110715

REACTIONS (3)
  - Drug dose omission [Unknown]
  - Medical device complication [Not Recovered/Not Resolved]
  - Unintended pregnancy [Unknown]
